FAERS Safety Report 16479034 (Version 1)
Quarter: 2019Q2

REPORT INFORMATION
  Report Type: Spontaneous
  Country: EG (occurrence: EG)
  Receive Date: 20190626
  Receipt Date: 20190626
  Transmission Date: 20190711
  Serious: Yes (Other)
  Sender: FDA-Public Use
  Company Number: EG-HIKMA PHARMACEUTICALS USA INC.-EG-H14001-19-04036

PATIENT
  Sex: Female

DRUGS (12)
  1. OXALIPLATIN. [Suspect]
     Active Substance: OXALIPLATIN
     Indication: NEOPLASM MALIGNANT
     Route: 041
     Dates: start: 20190221, end: 20190221
  2. NYRIN [Suspect]
     Active Substance: LEUCOVORIN CALCIUM
     Route: 041
  3. CHLORPHENIRAMINE. [Concomitant]
     Active Substance: CHLORPHENIRAMINE
     Indication: PROPHYLAXIS OF NAUSEA AND VOMITING
     Route: 065
     Dates: start: 20190221, end: 20190221
  4. DEXAMETHASONE. [Concomitant]
     Active Substance: DEXAMETHASONE
     Indication: PROPHYLAXIS OF NAUSEA AND VOMITING
     Route: 065
     Dates: start: 20190221, end: 20190221
  5. CONTROLOC [Concomitant]
     Active Substance: PANTOPRAZOLE SODIUM
     Indication: PRODUCT USED FOR UNKNOWN INDICATION
     Route: 065
  6. NYRIN [Suspect]
     Active Substance: LEUCOVORIN CALCIUM
     Indication: NEOPLASM MALIGNANT
     Route: 041
     Dates: start: 20190221, end: 20190221
  7. UTORAL [Suspect]
     Active Substance: FLUOROURACIL
     Route: 041
  8. GRANITRYL [Concomitant]
     Indication: PROPHYLAXIS OF NAUSEA AND VOMITING
     Route: 065
     Dates: start: 20190221, end: 20190221
  9. SPASMO DIGESTIN [Concomitant]
     Indication: DYSPEPSIA
     Route: 048
     Dates: start: 20190221
  10. UTORAL [Suspect]
     Active Substance: FLUOROURACIL
     Route: 041
     Dates: start: 20190221, end: 20190223
  11. ZANTAC [Concomitant]
     Active Substance: RANITIDINE HYDROCHLORIDE
     Indication: PROPHYLAXIS OF NAUSEA AND VOMITING
     Route: 065
     Dates: start: 20190221, end: 20190221
  12. OXALIPLATIN. [Suspect]
     Active Substance: OXALIPLATIN
     Route: 041

REACTIONS (12)
  - Eye irritation [Unknown]
  - Myalgia [Not Recovered/Not Resolved]
  - Tinnitus [Unknown]
  - Tinea infection [Not Recovered/Not Resolved]
  - Nausea [Recovered/Resolved]
  - Dyspepsia [Not Recovered/Not Resolved]
  - Stomatitis [Recovered/Resolved]
  - Diarrhoea [Recovered/Resolved]
  - Dyspnoea [Recovered/Resolved]
  - Leukocytosis [Unknown]
  - Thrombocytosis [Unknown]
  - Productive cough [Unknown]

NARRATIVE: CASE EVENT DATE: 20190304
